FAERS Safety Report 10089669 (Version 1)
Quarter: 2014Q2

REPORT INFORMATION
  Report Type: Spontaneous
  Country: US (occurrence: US)
  Receive Date: 20140421
  Receipt Date: 20140421
  Transmission Date: 20141212
  Serious: No
  Sender: FDA-Public Use
  Company Number: US-PFIZER INC-2014108462

PATIENT
  Sex: 0

DRUGS (10)
  1. MORPHINE SULFATE [Suspect]
     Dosage: UNK
  2. OXYCODONE HYDROCHLORIDE [Suspect]
     Dosage: UNK
  3. NEURONTIN [Suspect]
     Dosage: UNK
  4. CHANTIX [Suspect]
     Dosage: UNK
  5. ASA [Suspect]
     Dosage: UNK
  6. FLEXERIL [Suspect]
     Dosage: UNK
  7. NAPROXEN [Suspect]
     Dosage: UNK
  8. HUMULIN R [Suspect]
     Dosage: UNK
  9. METFORMIN [Suspect]
     Dosage: UNK
  10. LANTUS [Suspect]
     Dosage: UNK

REACTIONS (1)
  - Drug hypersensitivity [Unknown]
